FAERS Safety Report 6312661-0 (Version None)
Quarter: 2009Q3

REPORT INFORMATION
  Report Type: 
  Country: None (occurrence: None)
  Receive Date: 20090818
  Receipt Date: 20090804
  Transmission Date: 20100115
  Serious: Yes (Hospitalization)
  Sender: FDA-Public Use
  Company Number: DE-BIOGENIDEC-2009BI024308

PATIENT
  Age: 33 Year
  Sex: Male
  Weight: 84 kg

DRUGS (3)
  1. TYSABRI [Suspect]
     Indication: MULTIPLE SCLEROSIS
     Route: 042
     Dates: start: 20080114
  2. VIVEO [Concomitant]
     Indication: MUSCLE SPASTICITY
     Dates: start: 20090414, end: 20090721
  3. VIVEO [Concomitant]
     Dates: start: 20090722

REACTIONS (1)
  - THERAPEUTIC AGENT TOXICITY [None]
